FAERS Safety Report 5863864-0 (Version None)
Quarter: 2008Q3

REPORT INFORMATION
  Report Type: 
  Country: None (occurrence: None)
  Receive Date: 20080827
  Receipt Date: 20080806
  Transmission Date: 20090109
  Serious: Yes (Hospitalization)
  Sender: FDA-Public Use
  Company Number: 2008SP015935

PATIENT
  Age: 22 Year
  Sex: Female
  Weight: 54 kg

DRUGS (3)
  1. PEG-INTRON [Suspect]
     Indication: HEPATITIS B
     Dosage: 80 MCG;QW
     Dates: start: 20080414, end: 20080729
  2. PEG-INTRON [Suspect]
     Indication: HEPATITIS B
     Dosage: 80 MCG;QW
     Dates: start: 20080819
  3. PEG-INTRON [Suspect]

REACTIONS (5)
  - ALANINE AMINOTRANSFERASE INCREASED [None]
  - ANOREXIA [None]
  - ASPARTATE AMINOTRANSFERASE INCREASED [None]
  - FATIGUE [None]
  - GAMMA-GLUTAMYLTRANSFERASE INCREASED [None]
